FAERS Safety Report 18279739 (Version 1)
Quarter: 2020Q3

REPORT INFORMATION
  Report Type: Spontaneous
  Country: US (occurrence: US)
  Receive Date: 20200918
  Receipt Date: 20200918
  Transmission Date: 20201103
  Serious: Yes (Death)
  Sender: FDA-Public Use
  Company Number: US-ROCHE-2678799

PATIENT
  Age: 78 Year
  Sex: Male

DRUGS (8)
  1. MUCINEX [Concomitant]
     Active Substance: GUAIFENESIN
  2. ESBRIET [Suspect]
     Active Substance: PIRFENIDONE
     Indication: IDIOPATHIC PULMONARY FIBROSIS
     Route: 048
     Dates: start: 20200207, end: 20200913
  3. FUROSEMIDE. [Concomitant]
     Active Substance: FUROSEMIDE
  4. DOCUSATE [Concomitant]
     Active Substance: DOCUSATE
  5. PREDNISONE. [Concomitant]
     Active Substance: PREDNISONE
  6. IBUPROFEN. [Concomitant]
     Active Substance: IBUPROFEN
  7. LIPITOR [Concomitant]
     Active Substance: ATORVASTATIN CALCIUM
  8. ASPIRIN. [Concomitant]
     Active Substance: ASPIRIN

REACTIONS (1)
  - Death [Fatal]

NARRATIVE: CASE EVENT DATE: 20200913
